FAERS Safety Report 23244971 (Version 7)
Quarter: 2025Q3

REPORT INFORMATION
  Report Type: Spontaneous
  Country: CA (occurrence: CA)
  Receive Date: 20231130
  Receipt Date: 20250926
  Transmission Date: 20251021
  Serious: Yes (Hospitalization, Other)
  Sender: ORGANON
  Company Number: CA-ORGANON-O2311CAN002856

PATIENT
  Age: 41 Year
  Sex: Female

DRUGS (472)
  1. MOMETASONE FUROATE [Suspect]
     Active Substance: MOMETASONE FUROATE
     Indication: Migraine
     Route: 065
  2. MOMETASONE FUROATE [Suspect]
     Active Substance: MOMETASONE FUROATE
     Route: 065
  3. MAXALT [Suspect]
     Active Substance: RIZATRIPTAN BENZOATE
     Indication: Migraine
     Route: 065
  4. MAXALT [Suspect]
     Active Substance: RIZATRIPTAN BENZOATE
     Dosage: 10 MILLIGRAM,1 EVERY 1 DAYS
     Route: 065
  5. MAXALT [Suspect]
     Active Substance: RIZATRIPTAN BENZOATE
     Route: 065
  6. MAXALT [Suspect]
     Active Substance: RIZATRIPTAN BENZOATE
     Route: 065
  7. MAXALT [Suspect]
     Active Substance: RIZATRIPTAN BENZOATE
     Route: 065
  8. MAXALT [Suspect]
     Active Substance: RIZATRIPTAN BENZOATE
     Route: 065
  9. MAXALT [Suspect]
     Active Substance: RIZATRIPTAN BENZOATE
     Route: 065
  10. MAXALT [Suspect]
     Active Substance: RIZATRIPTAN BENZOATE
     Indication: Migraine
     Route: 065
  11. MAXALT [Suspect]
     Active Substance: RIZATRIPTAN BENZOATE
     Route: 065
  12. MAXALT [Suspect]
     Active Substance: RIZATRIPTAN BENZOATE
     Route: 065
  13. NASONEX [Suspect]
     Active Substance: MOMETASONE FUROATE
     Indication: Migraine
     Route: 065
  14. NASONEX [Suspect]
     Active Substance: MOMETASONE FUROATE
     Route: 065
  15. NASONEX [Suspect]
     Active Substance: MOMETASONE FUROATE
     Route: 065
  16. NASONEX [Suspect]
     Active Substance: MOMETASONE FUROATE
     Route: 065
  17. ACETAMINOPHEN [Suspect]
     Active Substance: ACETAMINOPHEN
     Indication: Product used for unknown indication
     Route: 065
  18. ACETAMINOPHEN [Suspect]
     Active Substance: ACETAMINOPHEN
     Route: 065
  19. ACETAMINOPHEN [Suspect]
     Active Substance: ACETAMINOPHEN
     Indication: Migraine
     Route: 065
  20. ACETAMINOPHEN [Suspect]
     Active Substance: ACETAMINOPHEN
     Indication: Arthritis
     Route: 065
  21. ACETAMINOPHEN AND CODEINE [Suspect]
     Active Substance: ACETAMINOPHEN\CODEINE PHOSPHATE
     Indication: Product used for unknown indication
     Route: 065
  22. AMOXICILLIN [Suspect]
     Active Substance: AMOXICILLIN
     Indication: Product used for unknown indication
     Route: 065
  23. AMOXICILLIN [Suspect]
     Active Substance: AMOXICILLIN
     Dosage: 6 DOSAGE FORM, 1 EVERY 1 DAYS
     Route: 065
  24. AMOXICILLIN [Suspect]
     Active Substance: AMOXICILLIN
     Route: 065
  25. AMOXICILLIN [Suspect]
     Active Substance: AMOXICILLIN
     Route: 065
  26. AMOXICILLIN [Suspect]
     Active Substance: AMOXICILLIN
     Dosage: 2 DOSAGE FORM 1 EVERY 8 HOURS
     Route: 065
  27. AMOXICILLIN [Suspect]
     Active Substance: AMOXICILLIN
     Dosage: 2 DOSAGE FORM QD
     Route: 065
  28. AMOXICILLIN TRIHYDRATE [Suspect]
     Active Substance: AMOXICILLIN
     Indication: Product used for unknown indication
     Dosage: 6 DOSAGE FORM, 1 EVERY 1 DAYS
     Route: 065
  29. AMOXICILLIN TRIHYDRATE [Suspect]
     Active Substance: AMOXICILLIN
     Dosage: 6 DOSAGE FORM, 1 EVERY 1 DAYS
     Route: 065
  30. AMOXICILLIN TRIHYDRATE [Suspect]
     Active Substance: AMOXICILLIN
     Dosage: 2 DOSAGE FORM, 1 EVERY 1 DAYS
     Route: 065
  31. AMOXICILLIN TRIHYDRATE [Suspect]
     Active Substance: AMOXICILLIN
     Dosage: 2 DOSAGE FORM, 3 EVERY 1 DAYS
     Route: 065
  32. AMOXICILLIN TRIHYDRATE [Suspect]
     Active Substance: AMOXICILLIN
     Dosage: 2 DOSAGE FORM, 3 EVERY 1 DAYS
     Route: 065
  33. AMOXICILLIN TRIHYDRATE [Suspect]
     Active Substance: AMOXICILLIN
     Route: 065
  34. AMOXICILLIN TRIHYDRATE [Suspect]
     Active Substance: AMOXICILLIN
     Dosage: 2 DOSAGE FORM, 3 EVERY 1 DAYS
     Route: 065
  35. AMOXICILLIN TRIHYDRATE [Suspect]
     Active Substance: AMOXICILLIN
     Route: 065
  36. AMOXICILLIN TRIHYDRATE [Suspect]
     Active Substance: AMOXICILLIN
     Route: 065
  37. AMOXICILLIN TRIHYDRATE [Suspect]
     Active Substance: AMOXICILLIN
     Dosage: 2 DOSAGE FORM, 3 EVERY 1 DAYS
     Route: 065
  38. LISINOPRIL [Suspect]
     Active Substance: LISINOPRIL
     Indication: Product used for unknown indication
     Route: 065
  39. LISINOPRIL [Suspect]
     Active Substance: LISINOPRIL
     Route: 065
  40. LISINOPRIL [Suspect]
     Active Substance: LISINOPRIL
     Route: 065
  41. LISINOPRIL [Suspect]
     Active Substance: LISINOPRIL
     Route: 065
  42. LISINOPRIL [Suspect]
     Active Substance: LISINOPRIL
     Route: 065
  43. LISINOPRIL [Suspect]
     Active Substance: LISINOPRIL
     Route: 065
  44. LISINOPRIL [Suspect]
     Active Substance: LISINOPRIL
     Route: 065
  45. LISINOPRIL [Suspect]
     Active Substance: LISINOPRIL
     Route: 065
  46. LISINOPRIL [Suspect]
     Active Substance: LISINOPRIL
     Route: 065
  47. LISINOPRIL [Suspect]
     Active Substance: LISINOPRIL
     Route: 065
  48. BOTULINUM TOXIN TYPE A [Suspect]
     Active Substance: BOTULINUM TOXIN TYPE A
     Indication: Product used for unknown indication
     Route: 065
  49. BOTULINUM TOXIN TYPE A [Suspect]
     Active Substance: BOTULINUM TOXIN TYPE A
     Route: 065
  50. BOTULINUM TOXIN TYPE A [Suspect]
     Active Substance: BOTULINUM TOXIN TYPE A
     Route: 030
  51. BOTULINUM TOXIN TYPE A [Suspect]
     Active Substance: BOTULINUM TOXIN TYPE A
     Route: 065
  52. BOTULINUM TOXIN TYPE A [Suspect]
     Active Substance: BOTULINUM TOXIN TYPE A
     Route: 065
  53. BOTULINUM TOXIN TYPE A [Suspect]
     Active Substance: BOTULINUM TOXIN TYPE A
     Route: 065
  54. BOTULINUM TOXIN TYPE A [Suspect]
     Active Substance: BOTULINUM TOXIN TYPE A
     Route: 065
  55. BOTULINUM TOXIN TYPE A [Suspect]
     Active Substance: BOTULINUM TOXIN TYPE A
     Route: 065
  56. CIPROFLOXACIN HYDROCHLORIDE [Suspect]
     Active Substance: CIPROFLOXACIN HYDROCHLORIDE
     Indication: Product used for unknown indication
     Route: 048
  57. CIPROFLOXACIN HYDROCHLORIDE [Suspect]
     Active Substance: CIPROFLOXACIN HYDROCHLORIDE
     Indication: Migraine
     Route: 065
  58. CIPROFLOXACIN HYDROCHLORIDE [Suspect]
     Active Substance: CIPROFLOXACIN HYDROCHLORIDE
     Dosage: 1 DOSAGE FORM, 2 EVERY 1 DAYS
     Route: 065
  59. CIPROFLOXACIN HYDROCHLORIDE [Suspect]
     Active Substance: CIPROFLOXACIN HYDROCHLORIDE
     Dosage: 2 DOSAGE FORM, 2 EVERY 1 DAYS
     Route: 065
  60. CIPROFLOXACIN HYDROCHLORIDE [Suspect]
     Active Substance: CIPROFLOXACIN HYDROCHLORIDE
     Dosage: 2 DOSAGE FORM, 1 EVERY 1 DAYS
     Route: 048
  61. CIPROFLOXACIN HYDROCHLORIDE [Suspect]
     Active Substance: CIPROFLOXACIN HYDROCHLORIDE
     Dosage: 1 DOSAGE FORM, 2 EVERY 1 DAYS
     Route: 065
  62. CIPROFLOXACIN HYDROCHLORIDE [Suspect]
     Active Substance: CIPROFLOXACIN HYDROCHLORIDE
     Dosage: 1 DOSAGE FORM, 1 EVERY 1 DAYS
     Route: 065
  63. CIPROFLOXACIN HYDROCHLORIDE [Suspect]
     Active Substance: CIPROFLOXACIN HYDROCHLORIDE
     Dosage: 2 DOSAGE FORM, 1 EVERY 1 DAYS
     Route: 048
  64. CIPROFLOXACIN HYDROCHLORIDE [Suspect]
     Active Substance: CIPROFLOXACIN HYDROCHLORIDE
     Dosage: 1 DOSAGE FORM, 1 EVERY 1 DAYS
     Route: 065
  65. CIPROFLOXACIN HYDROCHLORIDE [Suspect]
     Active Substance: CIPROFLOXACIN HYDROCHLORIDE
     Dosage: 1 DOSAGE FORM, 1 EVERY 1 DAYS
     Route: 048
  66. CIPROFLOXACIN HYDROCHLORIDE [Suspect]
     Active Substance: CIPROFLOXACIN HYDROCHLORIDE
     Dosage: 1 DOSAGE FORM, 1 EVERY 12 HOURS
     Route: 065
  67. CIPROFLOXACIN HYDROCHLORIDE [Suspect]
     Active Substance: CIPROFLOXACIN HYDROCHLORIDE
     Route: 065
  68. CIPROFLOXACIN HYDROCHLORIDE [Suspect]
     Active Substance: CIPROFLOXACIN HYDROCHLORIDE
     Dosage: 1 DOSAGE FORM, 1 EVERY 12 HOURS
     Route: 048
  69. CIPROFLOXACIN HYDROCHLORIDE [Suspect]
     Active Substance: CIPROFLOXACIN HYDROCHLORIDE
     Dosage: 1 DOSAGE FORM, 1 EVERY 12 HOURS
     Route: 065
  70. CIPROFLOXACIN [Suspect]
     Active Substance: CIPROFLOXACIN
     Indication: Migraine
     Route: 065
  71. CIPROFLOXACIN [Suspect]
     Active Substance: CIPROFLOXACIN
     Route: 065
  72. CIPROFLOXACIN [Suspect]
     Active Substance: CIPROFLOXACIN
     Dosage: 1 EVERY 1 DAYS
     Route: 065
  73. CIPROFLOXACIN [Suspect]
     Active Substance: CIPROFLOXACIN
     Route: 065
  74. CIPROFLOXACIN [Suspect]
     Active Substance: CIPROFLOXACIN
     Dosage: 1 EVERY 1 DAYS
     Route: 065
  75. CIPROFLOXACIN [Suspect]
     Active Substance: CIPROFLOXACIN
     Route: 048
  76. CLARITHROMYCIN [Suspect]
     Active Substance: CLARITHROMYCIN
     Indication: Product used for unknown indication
     Dosage: 2 DOSAGE FORM 1 EVERY 1 DAYS
     Route: 065
  77. CLARITHROMYCIN [Suspect]
     Active Substance: CLARITHROMYCIN
     Route: 065
  78. CLARITHROMYCIN [Suspect]
     Active Substance: CLARITHROMYCIN
     Route: 065
  79. CLARITHROMYCIN [Suspect]
     Active Substance: CLARITHROMYCIN
     Dosage: 1.0 DOSAGE FORMS 1 EVERY 1 DAYS
     Route: 065
  80. CLARITHROMYCIN [Suspect]
     Active Substance: CLARITHROMYCIN
     Route: 065
  81. CLARITHROMYCIN [Suspect]
     Active Substance: CLARITHROMYCIN
     Dosage: 1 EVERY 12 HOURS
     Route: 065
  82. CLARITHROMYCIN [Suspect]
     Active Substance: CLARITHROMYCIN
     Route: 065
  83. CLARITHROMYCIN [Suspect]
     Active Substance: CLARITHROMYCIN
     Route: 065
  84. CLOTRIMAZOLE\FLUCONAZOLE [Suspect]
     Active Substance: CLOTRIMAZOLE\FLUCONAZOLE
     Indication: Product used for unknown indication
     Route: 065
  85. CODEINE [Suspect]
     Active Substance: CODEINE
     Indication: Migraine
     Route: 065
  86. CODEINE [Suspect]
     Active Substance: CODEINE
     Indication: Migraine
     Route: 065
  87. CODEINE [Suspect]
     Active Substance: CODEINE
     Indication: Product used for unknown indication
     Route: 065
  88. CODEINE SULFATE [Suspect]
     Active Substance: CODEINE SULFATE
     Indication: Migraine
     Route: 065
  89. CYMBALTA [Suspect]
     Active Substance: DULOXETINE HYDROCHLORIDE
     Indication: Product used for unknown indication
     Route: 065
  90. CYMBALTA [Suspect]
     Active Substance: DULOXETINE HYDROCHLORIDE
     Dosage: 2 DOSAGE FORM 1 EVERY 1 DAYS
     Route: 065
  91. CYMBALTA [Suspect]
     Active Substance: DULOXETINE HYDROCHLORIDE
     Route: 065
  92. CYMBALTA [Suspect]
     Active Substance: DULOXETINE HYDROCHLORIDE
     Route: 065
  93. DEXAMETHASONE [Suspect]
     Active Substance: DEXAMETHASONE
     Indication: Product used for unknown indication
     Route: 065
  94. DEXAMETHASONE [Suspect]
     Active Substance: DEXAMETHASONE
     Route: 065
  95. DEXAMETHASONE [Suspect]
     Active Substance: DEXAMETHASONE
     Route: 065
  96. DEXAMETHASONE [Suspect]
     Active Substance: DEXAMETHASONE
     Dosage: 1.0 DOSAGE FORMS 1 EVERY 1 DAYS
     Route: 065
  97. DEXAMETHASONE [Suspect]
     Active Substance: DEXAMETHASONE
  98. DEXAMETHASONE [Suspect]
     Active Substance: DEXAMETHASONE
  99. DEXAMETHASONE [Suspect]
     Active Substance: DEXAMETHASONE
     Dosage: 2.0 MILLIGRAM 1 EVERY 1 DAYS
     Route: 065
  100. DEXAMETHASONE [Suspect]
     Active Substance: DEXAMETHASONE
     Route: 065
  101. DULOXETINE HYDROCHLORIDE [Suspect]
     Active Substance: DULOXETINE HYDROCHLORIDE
     Indication: Migraine
     Route: 065
  102. DULOXETINE HYDROCHLORIDE [Suspect]
     Active Substance: DULOXETINE HYDROCHLORIDE
     Route: 065
  103. ESCITALOPRAM OXALATE [Suspect]
     Active Substance: ESCITALOPRAM OXALATE
     Indication: Product used for unknown indication
     Route: 048
  104. ESCITALOPRAM OXALATE [Suspect]
     Active Substance: ESCITALOPRAM OXALATE
     Indication: Migraine
     Route: 065
  105. ESCITALOPRAM OXALATE [Suspect]
     Active Substance: ESCITALOPRAM OXALATE
     Route: 065
  106. ESCITALOPRAM OXALATE [Suspect]
     Active Substance: ESCITALOPRAM OXALATE
     Route: 065
  107. ESCITALOPRAM OXALATE [Suspect]
     Active Substance: ESCITALOPRAM OXALATE
     Route: 065
  108. ESCITALOPRAM [Suspect]
     Active Substance: ESCITALOPRAM OXALATE
     Indication: Product used for unknown indication
     Route: 065
  109. ESOMEPRAZOLE MAGNESIUM [Suspect]
     Active Substance: ESOMEPRAZOLE MAGNESIUM
     Indication: Migraine
     Route: 065
  110. ESOMEPRAZOLE MAGNESIUM [Suspect]
     Active Substance: ESOMEPRAZOLE MAGNESIUM
     Route: 065
  111. ESOMEPRAZOLE MAGNESIUM [Suspect]
     Active Substance: ESOMEPRAZOLE MAGNESIUM
     Route: 065
  112. FLUCONAZOLE [Suspect]
     Active Substance: FLUCONAZOLE
     Indication: Product used for unknown indication
     Route: 065
  113. FLUCONAZOLE [Suspect]
     Active Substance: FLUCONAZOLE
     Indication: Migraine
     Dosage: 1.0 DOSAGE FORMS 1 EVERY 1 DAYS
     Route: 065
  114. FLUCONAZOLE [Suspect]
     Active Substance: FLUCONAZOLE
     Dosage: 40.0 MILLIGRAM
     Route: 065
  115. FLUCONAZOLE [Suspect]
     Active Substance: FLUCONAZOLE
     Route: 065
  116. HYDROMORPHONE [Suspect]
     Active Substance: HYDROMORPHONE
     Indication: Migraine
     Dosage: 2.0 DOSAGE FORMS 1 EVERY 1 DAYS
     Route: 065
  117. HYDROMORPHONE [Suspect]
     Active Substance: HYDROMORPHONE
     Route: 065
  118. HYDROMORPHONE [Suspect]
     Active Substance: HYDROMORPHONE
     Dosage: 1.0 DOSAGE FORMS 1 EVERY 12 HOURS
     Route: 065
  119. HYDROMORPHONE [Suspect]
     Active Substance: HYDROMORPHONE
     Route: 065
  120. HYDROMORPHONE [Suspect]
     Active Substance: HYDROMORPHONE
     Route: 065
  121. HYDROMORPHONE [Suspect]
     Active Substance: HYDROMORPHONE
     Route: 065
  122. HYDROMORPHONE [Suspect]
     Active Substance: HYDROMORPHONE
     Route: 065
  123. HYDROMORPHONE [Suspect]
     Active Substance: HYDROMORPHONE
     Route: 065
  124. HYDROMORPHONE [Suspect]
     Active Substance: HYDROMORPHONE
     Route: 065
  125. HYDROMORPHONE [Suspect]
     Active Substance: HYDROMORPHONE
     Route: 065
  126. HYDROMORPHONE [Suspect]
     Active Substance: HYDROMORPHONE
     Route: 065
  127. HYDROMORPHONE [Suspect]
     Active Substance: HYDROMORPHONE
     Route: 065
  128. HYDROMORPHONE HYDROCHLORIDE [Suspect]
     Active Substance: HYDROMORPHONE HYDROCHLORIDE
     Indication: Product used for unknown indication
     Dosage: 2.0 DOSAGE FORMS 1 EVERY 1 DAYS
     Route: 065
  129. HYDROMORPHONE HYDROCHLORIDE [Suspect]
     Active Substance: HYDROMORPHONE HYDROCHLORIDE
     Dosage: 1.0 DOSAGE FORMS 1 EVERY 12 HOURS
     Route: 065
  130. HYDROMORPHONE HYDROCHLORIDE [Suspect]
     Active Substance: HYDROMORPHONE HYDROCHLORIDE
     Dosage: 1.0 DOSAGE FORMS 1 EVERY 12 HOURS
     Route: 065
  131. HYDROMORPHONE HYDROCHLORIDE [Suspect]
     Active Substance: HYDROMORPHONE HYDROCHLORIDE
     Dosage: 1.0 DOSAGE FORMS 1 EVERY 12 HOURS
     Route: 065
  132. HYDROMORPHONE HYDROCHLORIDE [Suspect]
     Active Substance: HYDROMORPHONE HYDROCHLORIDE
     Dosage: 1.0 DOSAGE FORMS 1 EVERY 12 HOURS
     Route: 065
  133. HYDROMORPHONE HYDROCHLORIDE [Suspect]
     Active Substance: HYDROMORPHONE HYDROCHLORIDE
     Dosage: 1.0 DOSAGE FORMS 1 EVERY 12 HOURS
     Route: 065
  134. HYDROMORPHONE HYDROCHLORIDE [Suspect]
     Active Substance: HYDROMORPHONE HYDROCHLORIDE
     Dosage: 1.0 DOSAGE FORMS 1 EVERY 12 HOURS
     Route: 065
  135. HYDROMORPHONE HYDROCHLORIDE [Suspect]
     Active Substance: HYDROMORPHONE HYDROCHLORIDE
     Dosage: 1.0 DOSAGE FORMS 1 EVERY 12 HOURS
     Route: 065
  136. HYDROMORPHONE HYDROCHLORIDE [Suspect]
     Active Substance: HYDROMORPHONE HYDROCHLORIDE
     Dosage: 1.0 DOSAGE FORMS 1 EVERY 12 HOURS
     Route: 065
  137. HYDROMORPHONE HYDROCHLORIDE [Suspect]
     Active Substance: HYDROMORPHONE HYDROCHLORIDE
     Dosage: 1.0 DOSAGE FORMS 1 EVERY 12 HOURS
     Route: 065
  138. HYDROMORPHONE HYDROCHLORIDE [Suspect]
     Active Substance: HYDROMORPHONE HYDROCHLORIDE
     Dosage: 1.0 DOSAGE FORMS 1 EVERY 12 HOURS
     Route: 065
  139. BUTYLSCOPOLAMINE BROMIDE [Suspect]
     Active Substance: BUTYLSCOPOLAMINE BROMIDE
     Indication: Product used for unknown indication
     Route: 065
  140. BUTYLSCOPOLAMINE BROMIDE [Suspect]
     Active Substance: BUTYLSCOPOLAMINE BROMIDE
     Indication: Migraine
     Route: 065
  141. BUTYLSCOPOLAMINE BROMIDE [Suspect]
     Active Substance: BUTYLSCOPOLAMINE BROMIDE
     Route: 065
  142. BUTYLSCOPOLAMINE BROMIDE [Suspect]
     Active Substance: BUTYLSCOPOLAMINE BROMIDE
     Route: 065
  143. BUTYLSCOPOLAMINE BROMIDE [Suspect]
     Active Substance: BUTYLSCOPOLAMINE BROMIDE
     Route: 065
  144. BUTYLSCOPOLAMINE BROMIDE [Suspect]
     Active Substance: BUTYLSCOPOLAMINE BROMIDE
     Route: 065
  145. BUTYLSCOPOLAMINE BROMIDE [Suspect]
     Active Substance: BUTYLSCOPOLAMINE BROMIDE
     Route: 065
  146. INDOMETHACIN [Suspect]
     Active Substance: INDOMETHACIN
     Indication: Migraine
     Route: 054
  147. INDOMETHACIN [Suspect]
     Active Substance: INDOMETHACIN
     Route: 054
  148. INDOMETHACIN [Suspect]
     Active Substance: INDOMETHACIN
     Route: 054
  149. INDOMETHACIN [Suspect]
     Active Substance: INDOMETHACIN
     Route: 054
  150. INDOMETHACIN [Suspect]
     Active Substance: INDOMETHACIN
     Route: 054
  151. INDOMETHACIN [Suspect]
     Active Substance: INDOMETHACIN
     Route: 054
  152. INDOMETHACIN [Suspect]
     Active Substance: INDOMETHACIN
     Route: 054
  153. INDOMETHACIN [Suspect]
     Active Substance: INDOMETHACIN
     Route: 054
  154. INDOMETHACIN [Suspect]
     Active Substance: INDOMETHACIN
     Route: 054
  155. INDOMETHACIN [Suspect]
     Active Substance: INDOMETHACIN
     Route: 054
  156. INDOMETHACIN [Suspect]
     Active Substance: INDOMETHACIN
     Route: 054
  157. INDOMETHACIN [Suspect]
     Active Substance: INDOMETHACIN
     Route: 054
  158. INDOMETHACIN [Suspect]
     Active Substance: INDOMETHACIN
     Route: 054
  159. INDOMETHACIN [Suspect]
     Active Substance: INDOMETHACIN
     Route: 054
  160. INDOMETHACIN [Suspect]
     Active Substance: INDOMETHACIN
     Route: 054
  161. INDOMETHACIN [Suspect]
     Active Substance: INDOMETHACIN
     Route: 054
  162. INDOMETHACIN [Suspect]
     Active Substance: INDOMETHACIN
     Route: 054
  163. INDOMETHACIN [Suspect]
     Active Substance: INDOMETHACIN
     Route: 054
  164. INDOMETHACIN [Suspect]
     Active Substance: INDOMETHACIN
     Route: 054
  165. INDOMETHACIN [Suspect]
     Active Substance: INDOMETHACIN
     Route: 054
  166. INDOMETHACIN [Suspect]
     Active Substance: INDOMETHACIN
     Route: 054
  167. INDOMETHACIN [Suspect]
     Active Substance: INDOMETHACIN
     Route: 054
  168. INDOMETHACIN [Suspect]
     Active Substance: INDOMETHACIN
     Route: 054
  169. INDOMETHACIN [Suspect]
     Active Substance: INDOMETHACIN
     Route: 054
  170. INDOMETHACIN [Suspect]
     Active Substance: INDOMETHACIN
     Route: 054
  171. INDOMETHACIN [Suspect]
     Active Substance: INDOMETHACIN
     Route: 065
  172. INDOMETHACIN [Suspect]
     Active Substance: INDOMETHACIN
     Indication: Migraine
     Dosage: 1.0 DOSAGE FORMS 1 EVERY 12 HOURS
     Route: 054
  173. INDOMETHACIN [Suspect]
     Active Substance: INDOMETHACIN
     Route: 054
  174. INDOMETHACIN [Suspect]
     Active Substance: INDOMETHACIN
     Route: 065
  175. INDOMETHACIN [Suspect]
     Active Substance: INDOMETHACIN
     Route: 054
  176. INDOMETHACIN [Suspect]
     Active Substance: INDOMETHACIN
     Route: 054
  177. INDOMETHACIN [Suspect]
     Active Substance: INDOMETHACIN
     Route: 065
  178. INDOMETHACIN [Suspect]
     Active Substance: INDOMETHACIN
     Route: 054
  179. INDOMETHACIN [Suspect]
     Active Substance: INDOMETHACIN
     Dosage: 1.0 DOSAGE FORMS 1 EVERY 12 HOURS
     Route: 054
  180. INDOMETHACIN [Suspect]
     Active Substance: INDOMETHACIN
     Route: 054
  181. INDOMETHACIN [Suspect]
     Active Substance: INDOMETHACIN
     Route: 054
  182. INDOMETHACIN [Suspect]
     Active Substance: INDOMETHACIN
     Dosage: 1.0 DOSAGE FORMS 1 EVERY 12 HOURS
     Route: 054
  183. INDOMETHACIN [Suspect]
     Active Substance: INDOMETHACIN
     Dosage: 1.0 DOSAGE FORMS 1 EVERY 12 HOURS
     Route: 054
  184. INDOMETHACIN [Suspect]
     Active Substance: INDOMETHACIN
     Dosage: 1.0 DOSAGE FORMS 1 EVERY 12 HOURS
     Route: 054
  185. INDOMETHACIN [Suspect]
     Active Substance: INDOMETHACIN
     Dosage: 1.0 DOSAGE FORMS 1 EVERY 12 HOURS
     Route: 054
  186. INDOMETHACIN [Suspect]
     Active Substance: INDOMETHACIN
     Dosage: 1.0 DOSAGE FORMS 1 EVERY 12 HOURS
     Route: 054
  187. INDOMETHACIN [Suspect]
     Active Substance: INDOMETHACIN
     Dosage: 1.0 DOSAGE FORMS 1 EVERY 12 HOURS
     Route: 054
  188. INDOMETHACIN [Suspect]
     Active Substance: INDOMETHACIN
     Dosage: 1.0 DOSAGE FORMS 1 EVERY 12 HOURS
     Route: 054
  189. INDOMETHACIN [Suspect]
     Active Substance: INDOMETHACIN
     Dosage: 1.0 DOSAGE FORMS 1 EVERY 12 HOURS
     Route: 054
  190. INDOMETHACIN [Suspect]
     Active Substance: INDOMETHACIN
     Route: 054
  191. INDOMETHACIN [Suspect]
     Active Substance: INDOMETHACIN
     Route: 054
  192. INDOMETHACIN [Suspect]
     Active Substance: INDOMETHACIN
     Route: 054
  193. INDOMETHACIN [Suspect]
     Active Substance: INDOMETHACIN
     Route: 054
  194. INDOMETHACIN [Suspect]
     Active Substance: INDOMETHACIN
     Route: 065
  195. INDOMETHACIN [Suspect]
     Active Substance: INDOMETHACIN
     Route: 054
  196. INDOMETHACIN [Suspect]
     Active Substance: INDOMETHACIN
     Route: 054
  197. INDOMETHACIN [Suspect]
     Active Substance: INDOMETHACIN
     Dosage: 1.0 DOSAGE FORMS 1 EVERY 12 HOURS
     Route: 054
  198. INDOMETHACIN [Suspect]
     Active Substance: INDOMETHACIN
     Route: 054
  199. INDOMETHACIN [Suspect]
     Active Substance: INDOMETHACIN
     Route: 054
  200. LANSOPRAZOLE [Suspect]
     Active Substance: LANSOPRAZOLE
     Indication: Migraine
     Route: 065
  201. LANSOPRAZOLE [Suspect]
     Active Substance: LANSOPRAZOLE
     Dosage: 1.0 DOSAGE FORMS 1 EVERY 1 DAYS
     Route: 065
  202. LANSOPRAZOLE [Suspect]
     Active Substance: LANSOPRAZOLE
     Route: 065
  203. LANSOPRAZOLE [Suspect]
     Active Substance: LANSOPRAZOLE
     Route: 065
  204. METOCLOPRAMIDE [Suspect]
     Active Substance: METOCLOPRAMIDE
     Indication: Migraine
     Route: 065
  205. METOCLOPRAMIDE [Suspect]
     Active Substance: METOCLOPRAMIDE
     Route: 065
  206. METOCLOPRAMIDE [Suspect]
     Active Substance: METOCLOPRAMIDE
     Route: 065
  207. METOCLOPRAMIDE [Suspect]
     Active Substance: METOCLOPRAMIDE
     Route: 065
  208. METRONIDAZOLE [Suspect]
     Active Substance: METRONIDAZOLE
     Indication: Migraine
     Route: 065
  209. METRONIDAZOLE [Suspect]
     Active Substance: METRONIDAZOLE
     Route: 065
  210. METOCLOPRAMIDE HYDROCHLORIDE [Suspect]
     Active Substance: METOCLOPRAMIDE HYDROCHLORIDE
     Indication: Product used for unknown indication
     Route: 065
  211. METOCLOPRAMIDE HYDROCHLORIDE [Suspect]
     Active Substance: METOCLOPRAMIDE HYDROCHLORIDE
     Route: 065
  212. AZITHROMYCIN ANHYDROUS [Suspect]
     Active Substance: AZITHROMYCIN ANHYDROUS
     Indication: Product used for unknown indication
     Route: 065
  213. AZITHROMYCIN ANHYDROUS [Suspect]
     Active Substance: AZITHROMYCIN ANHYDROUS
     Indication: Migraine
     Route: 065
  214. AZITHROMYCIN ANHYDROUS [Suspect]
     Active Substance: AZITHROMYCIN ANHYDROUS
     Route: 065
  215. AZITHROMYCIN ANHYDROUS [Suspect]
     Active Substance: AZITHROMYCIN ANHYDROUS
     Dosage: 500.0 MILLIGRAM QD
     Route: 065
  216. PROPRANOLOL HYDROCHLORIDE [Suspect]
     Active Substance: PROPRANOLOL HYDROCHLORIDE
     Indication: Product used for unknown indication
     Route: 065
  217. PROPRANOLOL HYDROCHLORIDE [Suspect]
     Active Substance: PROPRANOLOL HYDROCHLORIDE
     Indication: Migraine
     Route: 065
  218. PROPRANOLOL HYDROCHLORIDE [Suspect]
     Active Substance: PROPRANOLOL HYDROCHLORIDE
     Route: 065
  219. PROPRANOLOL HYDROCHLORIDE [Suspect]
     Active Substance: PROPRANOLOL HYDROCHLORIDE
     Route: 065
  220. RABEPRAZOLE SODIUM [Suspect]
     Active Substance: RABEPRAZOLE SODIUM
     Indication: Product used for unknown indication
     Route: 065
  221. RABEPRAZOLE SODIUM [Suspect]
     Active Substance: RABEPRAZOLE SODIUM
     Indication: Migraine
     Route: 065
  222. RABEPRAZOLE SODIUM [Suspect]
     Active Substance: RABEPRAZOLE SODIUM
     Route: 065
  223. RABEPRAZOLE SODIUM [Suspect]
     Active Substance: RABEPRAZOLE SODIUM
     Route: 065
  224. RABEPRAZOLE SODIUM [Suspect]
     Active Substance: RABEPRAZOLE SODIUM
     Route: 065
  225. RABEPRAZOLE SODIUM [Suspect]
     Active Substance: RABEPRAZOLE SODIUM
     Route: 065
  226. RABEPRAZOLE SODIUM [Suspect]
     Active Substance: RABEPRAZOLE SODIUM
     Route: 065
  227. RABEPRAZOLE SODIUM [Suspect]
     Active Substance: RABEPRAZOLE SODIUM
     Route: 065
  228. RABEPRAZOLE SODIUM [Suspect]
     Active Substance: RABEPRAZOLE SODIUM
     Route: 065
  229. RABEPRAZOLE SODIUM [Suspect]
     Active Substance: RABEPRAZOLE SODIUM
     Route: 065
  230. RABEPRAZOLE SODIUM [Suspect]
     Active Substance: RABEPRAZOLE SODIUM
     Route: 065
  231. RABEPRAZOLE SODIUM [Suspect]
     Active Substance: RABEPRAZOLE SODIUM
     Route: 065
  232. RABEPRAZOLE SODIUM [Suspect]
     Active Substance: RABEPRAZOLE SODIUM
     Route: 065
  233. RABEPRAZOLE SODIUM [Suspect]
     Active Substance: RABEPRAZOLE SODIUM
     Route: 065
  234. RABEPRAZOLE SODIUM [Suspect]
     Active Substance: RABEPRAZOLE SODIUM
     Route: 065
  235. RABEPRAZOLE SODIUM [Suspect]
     Active Substance: RABEPRAZOLE SODIUM
     Route: 065
  236. RABEPRAZOLE SODIUM [Suspect]
     Active Substance: RABEPRAZOLE SODIUM
     Route: 065
  237. RABEPRAZOLE SODIUM [Suspect]
     Active Substance: RABEPRAZOLE SODIUM
     Route: 065
  238. RABEPRAZOLE SODIUM [Suspect]
     Active Substance: RABEPRAZOLE SODIUM
     Route: 065
  239. RABEPRAZOLE SODIUM [Suspect]
     Active Substance: RABEPRAZOLE SODIUM
     Route: 065
  240. RABEPRAZOLE SODIUM [Suspect]
     Active Substance: RABEPRAZOLE SODIUM
     Route: 065
  241. RABEPRAZOLE SODIUM [Suspect]
     Active Substance: RABEPRAZOLE SODIUM
     Route: 065
  242. RABEPRAZOLE SODIUM [Suspect]
     Active Substance: RABEPRAZOLE SODIUM
     Route: 065
  243. RABEPRAZOLE SODIUM [Suspect]
     Active Substance: RABEPRAZOLE SODIUM
     Route: 065
  244. ALBUTEROL [Suspect]
     Active Substance: ALBUTEROL
     Indication: Product used for unknown indication
     Route: 065
  245. ALBUTEROL [Suspect]
     Active Substance: ALBUTEROL
     Route: 065
  246. ALBUTEROL [Suspect]
     Active Substance: ALBUTEROL
     Route: 065
  247. ALBUTEROL [Suspect]
     Active Substance: ALBUTEROL
     Route: 065
  248. ALBUTEROL [Suspect]
     Active Substance: ALBUTEROL
     Dosage: 1 DOSAGE FORM, QD
     Route: 065
  249. SERTRALINE HYDROCHLORIDE [Suspect]
     Active Substance: SERTRALINE HYDROCHLORIDE
     Indication: Migraine
     Route: 065
  250. SUMATRIPTAN [Suspect]
     Active Substance: SUMATRIPTAN
     Indication: Migraine
     Route: 065
  251. SUMATRIPTAN [Suspect]
     Active Substance: SUMATRIPTAN
     Route: 065
  252. SUMATRIPTAN SUCCINATE [Suspect]
     Active Substance: SUMATRIPTAN SUCCINATE
     Indication: Product used for unknown indication
     Route: 065
  253. SUMATRIPTAN SUCCINATE [Suspect]
     Active Substance: SUMATRIPTAN SUCCINATE
     Indication: Migraine
     Route: 065
  254. SUMATRIPTAN SUCCINATE [Suspect]
     Active Substance: SUMATRIPTAN SUCCINATE
     Route: 065
  255. DULOXETINE [Suspect]
     Active Substance: DULOXETINE
     Indication: Migraine
     Route: 065
  256. DULOXETINE [Suspect]
     Active Substance: DULOXETINE
     Route: 065
  257. DULOXETINE [Suspect]
     Active Substance: DULOXETINE
     Route: 065
  258. DULOXETINE [Suspect]
     Active Substance: DULOXETINE
     Dosage: QD
     Route: 065
  259. TOPIRAMATE [Suspect]
     Active Substance: TOPIRAMATE
     Indication: Migraine
     Route: 065
  260. TOPIRAMATE [Suspect]
     Active Substance: TOPIRAMATE
     Route: 065
  261. AZITHROMYCIN DIHYDRATE [Suspect]
     Active Substance: AZITHROMYCIN DIHYDRATE
     Indication: Migraine
     Route: 065
  262. TRAMADOL [Suspect]
     Active Substance: TRAMADOL
     Indication: Product used for unknown indication
     Route: 065
  263. TRAMADOL HYDROCHLORIDE [Suspect]
     Active Substance: TRAMADOL HYDROCHLORIDE
     Indication: Product used for unknown indication
     Route: 065
  264. TRAMADOL HYDROCHLORIDE [Suspect]
     Active Substance: TRAMADOL HYDROCHLORIDE
     Indication: Product used for unknown indication
     Route: 065
  265. TRAMADOL HYDROCHLORIDE [Suspect]
     Active Substance: TRAMADOL HYDROCHLORIDE
     Route: 065
  266. TRIMETHOPRIM [Suspect]
     Active Substance: TRIMETHOPRIM
     Indication: Product used for unknown indication
     Route: 065
  267. TRIMETHOPRIM [Suspect]
     Active Substance: TRIMETHOPRIM
     Route: 065
  268. TRIMETHOPRIM [Suspect]
     Active Substance: TRIMETHOPRIM
     Route: 065
  269. VENLAFAXINE HYDROCHLORIDE [Suspect]
     Active Substance: VENLAFAXINE HYDROCHLORIDE
     Indication: Product used for unknown indication
     Route: 065
  270. VENLAFAXINE HYDROCHLORIDE [Suspect]
     Active Substance: VENLAFAXINE HYDROCHLORIDE
     Indication: Migraine
     Route: 065
  271. VENLAFAXINE HYDROCHLORIDE [Suspect]
     Active Substance: VENLAFAXINE HYDROCHLORIDE
     Route: 065
  272. VENLAFAXINE HYDROCHLORIDE [Suspect]
     Active Substance: VENLAFAXINE HYDROCHLORIDE
     Route: 065
  273. VENLAFAXINE HYDROCHLORIDE [Suspect]
     Active Substance: VENLAFAXINE HYDROCHLORIDE
     Route: 065
  274. VENLAFAXINE HYDROCHLORIDE [Suspect]
     Active Substance: VENLAFAXINE HYDROCHLORIDE
     Route: 065
  275. VENLAFAXINE HYDROCHLORIDE [Suspect]
     Active Substance: VENLAFAXINE HYDROCHLORIDE
     Route: 065
  276. ZOPICLONE [Suspect]
     Active Substance: ZOPICLONE
     Indication: Product used for unknown indication
     Route: 065
  277. ZOPICLONE [Suspect]
     Active Substance: ZOPICLONE
     Indication: Migraine
     Route: 065
  278. ZOPICLONE [Suspect]
     Active Substance: ZOPICLONE
     Route: 065
  279. ZOPICLONE [Suspect]
     Active Substance: ZOPICLONE
     Route: 065
  280. ZOPICLONE [Suspect]
     Active Substance: ZOPICLONE
     Route: 065
  281. ZOPICLONE [Suspect]
     Active Substance: ZOPICLONE
     Dosage: 1.0 DOSAGE FORMS 1 EVERY 1 DAYS
     Route: 065
  282. ZOPICLONE [Suspect]
     Active Substance: ZOPICLONE
     Dosage: 1.0 DOSAGE FORMS 1 EVERY 1 DAYS
     Route: 065
  283. ZOPICLONE [Suspect]
     Active Substance: ZOPICLONE
     Dosage: 1.0 DOSAGE FORMS 1 EVERY 1 DAYS
     Route: 065
  284. ZOPICLONE [Suspect]
     Active Substance: ZOPICLONE
     Dosage: 1.0 DOSAGE FORMS 1 EVERY 1 DAYS
     Route: 065
  285. ZOPICLONE [Suspect]
     Active Substance: ZOPICLONE
     Dosage: 1.0 DOSAGE FORMS 1 EVERY 1 DAYS
     Route: 065
  286. ZOPICLONE [Suspect]
     Active Substance: ZOPICLONE
     Dosage: 1.0 DOSAGE FORMS 1 EVERY 1 DAYS
     Route: 065
  287. ZOPICLONE [Suspect]
     Active Substance: ZOPICLONE
     Dosage: 1.0 DOSAGE FORMS 1 EVERY 1 DAYS
     Route: 065
  288. ZOPICLONE [Suspect]
     Active Substance: ZOPICLONE
     Dosage: 1.0 DOSAGE FORMS 1 EVERY 1 DAYS
     Route: 065
  289. ZOPICLONE [Suspect]
     Active Substance: ZOPICLONE
     Dosage: 1.0 DOSAGE FORMS 1 EVERY 1 DAYS
     Route: 065
  290. ZOPICLONE [Suspect]
     Active Substance: ZOPICLONE
     Dosage: 1.0 DOSAGE FORMS 1 EVERY 1 DAYS
     Route: 065
  291. ZOPICLONE [Suspect]
     Active Substance: ZOPICLONE
     Route: 065
  292. ZOPICLONE [Suspect]
     Active Substance: ZOPICLONE
     Dosage: 1.0 DOSAGE FORMS 1 EVERY 1 DAYS
     Route: 065
  293. ZOPICLONE [Suspect]
     Active Substance: ZOPICLONE
     Dosage: 1.0 DOSAGE FORMS 1 EVERY 1 DAYS
     Route: 065
  294. ZOPICLONE [Suspect]
     Active Substance: ZOPICLONE
     Dosage: 1.0 DOSAGE FORMS 1 EVERY 1 DAYS
     Route: 065
  295. ZOPICLONE [Suspect]
     Active Substance: ZOPICLONE
     Route: 065
  296. ZOPICLONE [Suspect]
     Active Substance: ZOPICLONE
     Dosage: 1.0 DOSAGE FORMS 1 EVERY 1 DAYS
     Route: 065
  297. PREDNISONE [Suspect]
     Active Substance: PREDNISONE
     Indication: Product used for unknown indication
     Route: 065
  298. PREDNISONE [Suspect]
     Active Substance: PREDNISONE
     Dosage: 2 DOSAGE FORM, QD
     Route: 065
  299. RABEPRAZOLE [Suspect]
     Active Substance: RABEPRAZOLE
     Indication: Migraine
     Dosage: 1.0 DOSAGE FORMS 1 EVERY 12 HOURS
     Route: 065
  300. RABEPRAZOLE [Suspect]
     Active Substance: RABEPRAZOLE
     Dosage: 1.0 DOSAGE FORMS 1 EVERY 12 HOURS
     Route: 065
  301. RABEPRAZOLE [Suspect]
     Active Substance: RABEPRAZOLE
     Dosage: 1.0 DOSAGE FORMS 1 EVERY 12 HOURS
     Route: 065
  302. RABEPRAZOLE [Suspect]
     Active Substance: RABEPRAZOLE
     Route: 065
  303. RABEPRAZOLE [Suspect]
     Active Substance: RABEPRAZOLE
     Route: 065
  304. RABEPRAZOLE [Suspect]
     Active Substance: RABEPRAZOLE
     Route: 065
  305. RABEPRAZOLE [Suspect]
     Active Substance: RABEPRAZOLE
     Dosage: 1 DOSAGE FORM, Q12H
     Route: 065
  306. RABEPRAZOLE [Suspect]
     Active Substance: RABEPRAZOLE
     Dosage: 1 DOSAGE FORM, Q12H
     Route: 065
  307. RABEPRAZOLE [Suspect]
     Active Substance: RABEPRAZOLE
     Dosage: 1 DOSAGE FORM, Q12H
     Route: 065
  308. RABEPRAZOLE [Suspect]
     Active Substance: RABEPRAZOLE
     Dosage: 1 DOSAGE FORM, Q12H
     Route: 065
  309. RABEPRAZOLE [Suspect]
     Active Substance: RABEPRAZOLE
     Dosage: 1 DOSAGE FORM, Q12H
     Route: 065
  310. RABEPRAZOLE [Suspect]
     Active Substance: RABEPRAZOLE
     Dosage: 1 DOSAGE FORM, Q12H
     Route: 065
  311. RABEPRAZOLE [Suspect]
     Active Substance: RABEPRAZOLE
     Dosage: 1 DOSAGE FORM, Q12H
     Route: 065
  312. RABEPRAZOLE [Suspect]
     Active Substance: RABEPRAZOLE
     Dosage: 1 DOSAGE FORM, Q12H
     Route: 065
  313. RABEPRAZOLE [Suspect]
     Active Substance: RABEPRAZOLE
     Dosage: 1 DOSAGE FORM, Q12H
     Route: 065
  314. RABEPRAZOLE [Suspect]
     Active Substance: RABEPRAZOLE
     Dosage: 1 DOSAGE FORM, Q12H
     Route: 065
  315. RABEPRAZOLE [Suspect]
     Active Substance: RABEPRAZOLE
     Dosage: 1 DOSAGE FORM, Q12H
     Route: 065
  316. RABEPRAZOLE [Suspect]
     Active Substance: RABEPRAZOLE
     Route: 065
  317. RABEPRAZOLE [Suspect]
     Active Substance: RABEPRAZOLE
     Dosage: 1 DOSAGE FORM 1 EVERY 12 HOURS
     Route: 065
  318. RABEPRAZOLE [Suspect]
     Active Substance: RABEPRAZOLE
     Route: 065
  319. RABEPRAZOLE [Suspect]
     Active Substance: RABEPRAZOLE
     Dosage: 1 DOSAGE FORM, Q12H
     Route: 065
  320. RABEPRAZOLE [Suspect]
     Active Substance: RABEPRAZOLE
     Dosage: 1 DOSAGE FORM, Q12H
     Route: 065
  321. RABEPRAZOLE [Suspect]
     Active Substance: RABEPRAZOLE
     Dosage: 1 DOSAGE FORM, Q12H
     Route: 065
  322. RABEPRAZOLE [Suspect]
     Active Substance: RABEPRAZOLE
     Dosage: 2 DOSAGE FORM, QD
     Route: 065
  323. RIZATRIPTAN [Suspect]
     Active Substance: RIZATRIPTAN
     Indication: Migraine
     Route: 065
  324. RIZATRIPTAN [Suspect]
     Active Substance: RIZATRIPTAN
     Route: 065
  325. RIZATRIPTAN [Suspect]
     Active Substance: RIZATRIPTAN
     Dosage: 1 EVERY 1 DAYS
     Route: 065
  326. RIZATRIPTAN [Suspect]
     Active Substance: RIZATRIPTAN
     Dosage: 1.0 DOSAGE FORMS 1 EVERY 1 DAYS
     Route: 065
  327. RIZATRIPTAN [Suspect]
     Active Substance: RIZATRIPTAN
     Dosage: 1.0 DOSAGE FORMS 1 EVERY 1 DAYS
     Route: 065
  328. VENLAFAXINE [Suspect]
     Active Substance: VENLAFAXINE HYDROCHLORIDE
     Indication: Migraine
     Route: 065
  329. VENLAFAXINE [Suspect]
     Active Substance: VENLAFAXINE HYDROCHLORIDE
     Route: 065
  330. VENLAFAXINE [Suspect]
     Active Substance: VENLAFAXINE HYDROCHLORIDE
     Route: 065
  331. SCOPOLAMINE HYDROBROMIDE [Suspect]
     Active Substance: SCOPOLAMINE HYDROBROMIDE
     Indication: Migraine
     Route: 065
  332. SERTRALINE HYDROCHLORIDE [Suspect]
     Active Substance: SERTRALINE HYDROCHLORIDE
     Indication: Migraine
     Route: 065
  333. SERTRALINE HYDROCHLORIDE [Suspect]
     Active Substance: SERTRALINE HYDROCHLORIDE
     Route: 065
  334. SERTRALINE HYDROCHLORIDE [Suspect]
     Active Substance: SERTRALINE HYDROCHLORIDE
     Route: 065
  335. ZOLMITRIPTAN [Suspect]
     Active Substance: ZOLMITRIPTAN
     Indication: Product used for unknown indication
     Route: 065
  336. AZITHROMYCIN [Suspect]
     Active Substance: AZITHROMYCIN
     Indication: Migraine
     Dosage: UNK, QD
     Route: 065
  337. AZITHROMYCIN [Suspect]
     Active Substance: AZITHROMYCIN
     Route: 065
  338. AZITHROMYCIN [Suspect]
     Active Substance: AZITHROMYCIN
     Route: 065
  339. AZITHROMYCIN [Suspect]
     Active Substance: AZITHROMYCIN
     Route: 065
  340. AZITHROMYCIN [Suspect]
     Active Substance: AZITHROMYCIN
     Route: 065
  341. AZITHROMYCIN [Suspect]
     Active Substance: AZITHROMYCIN
     Route: 065
  342. AZITHROMYCIN [Suspect]
     Active Substance: AZITHROMYCIN
     Route: 065
  343. AZITHROMYCIN [Suspect]
     Active Substance: AZITHROMYCIN
     Route: 065
  344. AZITHROMYCIN [Suspect]
     Active Substance: AZITHROMYCIN
     Route: 065
  345. AZITHROMYCIN [Suspect]
     Active Substance: AZITHROMYCIN
     Route: 065
  346. AZITHROMYCIN [Suspect]
     Active Substance: AZITHROMYCIN
     Route: 065
  347. AZITHROMYCIN [Suspect]
     Active Substance: AZITHROMYCIN
     Route: 065
  348. AZITHROMYCIN [Suspect]
     Active Substance: AZITHROMYCIN
     Route: 065
  349. AZITHROMYCIN [Suspect]
     Active Substance: AZITHROMYCIN
     Route: 065
  350. AZITHROMYCIN [Suspect]
     Active Substance: AZITHROMYCIN
     Route: 065
  351. FROVATRIPTAN SUCCINATE [Suspect]
     Active Substance: FROVATRIPTAN SUCCINATE
     Indication: Product used for unknown indication
     Dosage: 1 DOSAGE FORM, 1 EVERY 1 DAYS
     Route: 065
  352. FROVATRIPTAN SUCCINATE [Suspect]
     Active Substance: FROVATRIPTAN SUCCINATE
     Dosage: 1 DOSAGE FORM, 1 EVERY 1 DAYS
     Route: 065
  353. FROVATRIPTAN SUCCINATE [Suspect]
     Active Substance: FROVATRIPTAN SUCCINATE
     Route: 065
  354. ESOMEPRAZOLE MAGNESIUM [Suspect]
     Active Substance: ESOMEPRAZOLE MAGNESIUM
     Indication: Migraine
     Route: 065
  355. ESOMEPRAZOLE MAGNESIUM [Suspect]
     Active Substance: ESOMEPRAZOLE MAGNESIUM
     Route: 065
  356. LANSOPRAZOLE [Suspect]
     Active Substance: LANSOPRAZOLE
     Indication: Migraine
     Route: 065
  357. LANSOPRAZOLE [Suspect]
     Active Substance: LANSOPRAZOLE
     Route: 065
  358. INDOMETHACIN [Suspect]
     Active Substance: INDOMETHACIN
     Indication: Product used for unknown indication
     Route: 054
  359. INDOMETHACIN [Suspect]
     Active Substance: INDOMETHACIN
     Route: 054
  360. INDOMETHACIN [Suspect]
     Active Substance: INDOMETHACIN
     Route: 054
  361. INDOMETHACIN [Suspect]
     Active Substance: INDOMETHACIN
     Route: 054
  362. LISINOPRIL [Suspect]
     Active Substance: LISINOPRIL
     Indication: Migraine
     Dosage: 2 DOSAGE FORM, QD (1 EVERY 1 DAYS)
     Route: 065
  363. LISINOPRIL [Suspect]
     Active Substance: LISINOPRIL
     Route: 065
  364. LISINOPRIL [Suspect]
     Active Substance: LISINOPRIL
     Dosage: 1 DOSAGE FORM, QD (1 EVERY 1 DAYS)
     Route: 048
  365. LISINOPRIL [Suspect]
     Active Substance: LISINOPRIL
     Dosage: 1 DOSAGE FORM, QD (1 EVERY 1 DAYS)
     Route: 065
  366. RABEPRAZOLE [Suspect]
     Active Substance: RABEPRAZOLE
     Indication: Product used for unknown indication
     Dosage: 1 DOSAGE FORM, 2 EVERY 1 DAYS
     Route: 065
  367. RABEPRAZOLE [Suspect]
     Active Substance: RABEPRAZOLE
     Indication: Migraine
     Dosage: 1 DOSAGE FORM, 2 EVERY 1 DAYS
     Route: 065
  368. RABEPRAZOLE [Suspect]
     Active Substance: RABEPRAZOLE
     Dosage: 1 DOSAGE FORM, 2 EVERY 1 DAYS
     Route: 065
  369. RABEPRAZOLE [Suspect]
     Active Substance: RABEPRAZOLE
     Dosage: 1 DOSAGE FORM, 2 EVERY 1 DAYS
     Route: 065
  370. RABEPRAZOLE [Suspect]
     Active Substance: RABEPRAZOLE
     Dosage: 1 DOSAGE FORM, 2 EVERY 1 DAYS
     Route: 065
  371. RABEPRAZOLE [Suspect]
     Active Substance: RABEPRAZOLE
     Dosage: 1 DOSAGE FORM, 2 EVERY 1 DAYS
     Route: 065
  372. RABEPRAZOLE [Suspect]
     Active Substance: RABEPRAZOLE
     Dosage: 1 DOSAGE FORM, 2 EVERY 1 DAYS
     Route: 065
  373. RABEPRAZOLE [Suspect]
     Active Substance: RABEPRAZOLE
     Dosage: 1 DOSAGE FORM, 2 EVERY 1 DAYS
     Route: 065
  374. RABEPRAZOLE [Suspect]
     Active Substance: RABEPRAZOLE
     Dosage: 1 DOSAGE FORM, 2 EVERY 1 DAYS
     Route: 065
  375. RABEPRAZOLE [Suspect]
     Active Substance: RABEPRAZOLE
     Dosage: 1 DOSAGE FORM, 2 EVERY 1 DAYS
     Route: 065
  376. RABEPRAZOLE [Suspect]
     Active Substance: RABEPRAZOLE
     Route: 065
  377. RABEPRAZOLE [Suspect]
     Active Substance: RABEPRAZOLE
     Dosage: UNK, Q12H
     Route: 065
  378. RABEPRAZOLE [Suspect]
     Active Substance: RABEPRAZOLE
     Route: 065
  379. RABEPRAZOLE [Suspect]
     Active Substance: RABEPRAZOLE
     Route: 065
  380. RABEPRAZOLE [Suspect]
     Active Substance: RABEPRAZOLE
     Route: 065
  381. RABEPRAZOLE [Suspect]
     Active Substance: RABEPRAZOLE
     Dosage: 1 DOSAGE FORM, 2 EVERY 1 DAYS
     Route: 065
  382. RABEPRAZOLE [Suspect]
     Active Substance: RABEPRAZOLE
     Dosage: 1 DOSAGE FORM, 2 EVERY 1 DAYS
     Route: 065
  383. RABEPRAZOLE [Suspect]
     Active Substance: RABEPRAZOLE
     Dosage: 1 DOSAGE FORM, 2 EVERY 1 DAYS
     Route: 065
  384. RABEPRAZOLE [Suspect]
     Active Substance: RABEPRAZOLE
     Dosage: 1 DOSAGE FORM, 2 EVERY 1 DAYS
     Route: 065
  385. RABEPRAZOLE [Suspect]
     Active Substance: RABEPRAZOLE
     Dosage: 1 DOSAGE FORM, 2 EVERY 1 DAYS
     Route: 065
  386. RABEPRAZOLE [Suspect]
     Active Substance: RABEPRAZOLE
     Dosage: 1 DOSAGE FORM, 2 EVERY 1 DAYS
     Route: 065
  387. RABEPRAZOLE [Suspect]
     Active Substance: RABEPRAZOLE
     Dosage: 1 DOSAGE FORM, 2 EVERY 1 DAYS
     Route: 065
  388. RABEPRAZOLE [Suspect]
     Active Substance: RABEPRAZOLE
     Dosage: 1 DOSAGE FORM, 2 EVERY 1 DAYS
     Route: 065
  389. RABEPRAZOLE [Suspect]
     Active Substance: RABEPRAZOLE
     Dosage: 1 DOSAGE FORM, 2 EVERY 1 DAYS
     Route: 065
  390. ACETAMINOPHEN\TRAMADOL HYDROCHLORIDE [Concomitant]
     Active Substance: ACETAMINOPHEN\TRAMADOL HYDROCHLORIDE
     Indication: Product used for unknown indication
     Route: 065
  391. ACETAMINOPHEN\TRAMADOL HYDROCHLORIDE [Concomitant]
     Active Substance: ACETAMINOPHEN\TRAMADOL HYDROCHLORIDE
     Route: 065
  392. ALLOPURINOL [Concomitant]
     Active Substance: ALLOPURINOL
     Indication: Product used for unknown indication
     Route: 065
  393. CEFUROXIME AXETIL [Concomitant]
     Active Substance: CEFUROXIME AXETIL
     Indication: Product used for unknown indication
     Dosage: 2 DOSAGE FORM 1 EVERY 1 DAYS
     Route: 065
  394. CEFUROXIME AXETIL [Concomitant]
     Active Substance: CEFUROXIME AXETIL
     Dosage: 1 DOSAGE FORM 1 EVERY 12 HOURS
     Route: 065
  395. CEFUROXIME AXETIL [Concomitant]
     Active Substance: CEFUROXIME AXETIL
     Route: 065
  396. CEFUROXIME AXETIL [Concomitant]
     Active Substance: CEFUROXIME AXETIL
     Dosage: 3.0 DOSAGE FORMS 1 EVERY 1 DAYS
     Route: 065
  397. CEPHALEXIN [Concomitant]
     Active Substance: CEPHALEXIN
     Indication: Product used for unknown indication
     Dosage: 3 DOSAGE FORM 1 EVERY 1 DAYS
     Route: 065
  398. CEPHALEXIN [Concomitant]
     Active Substance: CEPHALEXIN
     Route: 065
  399. CEPHALEXIN [Concomitant]
     Active Substance: CEPHALEXIN
     Route: 065
  400. ACETAMINOPHEN AND CODEINE [Concomitant]
     Active Substance: ACETAMINOPHEN\CODEINE PHOSPHATE
     Indication: Product used for unknown indication
     Dosage: UNK, 1 EVERY 6 HOURS
     Route: 065
  401. ACETAMINOPHEN AND CODEINE [Concomitant]
     Active Substance: ACETAMINOPHEN\CODEINE PHOSPHATE
     Dosage: 1.0 DOSAGE FORMS 1 EVERY 1 DAYS
     Route: 065
  402. ACETAMINOPHEN AND CODEINE [Concomitant]
     Active Substance: ACETAMINOPHEN\CODEINE PHOSPHATE
     Dosage: UNK, 1 EVERY 6 HOURS
     Route: 065
  403. ELAVIL [Concomitant]
     Active Substance: AMITRIPTYLINE HYDROCHLORIDE
     Indication: Product used for unknown indication
     Route: 065
  404. ELAVIL [Concomitant]
     Active Substance: AMITRIPTYLINE HYDROCHLORIDE
     Route: 065
  405. FERROUS FUMARATE [Concomitant]
     Active Substance: FERROUS FUMARATE
     Indication: Product used for unknown indication
     Route: 065
  406. FERROUS FUMARATE [Concomitant]
     Active Substance: FERROUS FUMARATE
     Route: 065
  407. FLUOXETINE [Concomitant]
     Active Substance: FLUOXETINE HYDROCHLORIDE
     Indication: Product used for unknown indication
     Route: 065
  408. FLUOXETINE [Concomitant]
     Active Substance: FLUOXETINE HYDROCHLORIDE
     Route: 065
  409. FLUOXETINE [Concomitant]
     Active Substance: FLUOXETINE HYDROCHLORIDE
     Route: 065
  410. FLUOXETINE HYDROCHLORIDE [Concomitant]
     Active Substance: FLUOXETINE HYDROCHLORIDE
     Indication: Product used for unknown indication
     Route: 065
  411. FLUOXETINE HYDROCHLORIDE [Concomitant]
     Active Substance: FLUOXETINE HYDROCHLORIDE
     Route: 065
  412. FLUTICASONE [Concomitant]
     Active Substance: FLUTICASONE
     Indication: Product used for unknown indication
     Route: 065
  413. FLUTICASONE [Concomitant]
     Active Substance: FLUTICASONE
     Route: 065
  414. FLUTICASONE [Concomitant]
     Active Substance: FLUTICASONE
     Route: 065
  415. FLUTICASONE [Concomitant]
     Active Substance: FLUTICASONE
     Dosage: 1.0 DOSAGE FORMS 1 EVERY 1 DAYS
     Route: 065
  416. FLUTICASONE [Concomitant]
     Active Substance: FLUTICASONE
     Dosage: 6.0 DOSAGE FORMS 1 EVERY 1 DAYS
     Route: 065
  417. FLUTICASONE PROPIONATE [Concomitant]
     Active Substance: FLUTICASONE PROPIONATE
     Indication: Product used for unknown indication
     Route: 065
  418. FLUTICASONE PROPIONATE [Concomitant]
     Active Substance: FLUTICASONE PROPIONATE
     Route: 065
  419. FLUTICASONE PROPIONATE [Concomitant]
     Active Substance: FLUTICASONE PROPIONATE
     Route: 065
  420. FLUTICASONE PROPIONATE [Concomitant]
     Active Substance: FLUTICASONE PROPIONATE
     Route: 065
  421. POLYETHYLENE GLYCOLS [Concomitant]
     Active Substance: POLYETHYLENE GLYCOLS
     Indication: Product used for unknown indication
     Route: 065
  422. METOCLOPRAMIDE [Concomitant]
     Active Substance: METOCLOPRAMIDE
     Indication: Product used for unknown indication
     Dosage: 1 DOSAGE FORM, 1 EVERY 1 DAYS
     Route: 065
  423. METRONIDAZOLE [Concomitant]
     Active Substance: METRONIDAZOLE
     Indication: Product used for unknown indication
     Route: 065
  424. NASONEX [Concomitant]
     Active Substance: MOMETASONE FUROATE
     Indication: Product used for unknown indication
     Route: 065
  425. NASONEX [Concomitant]
     Active Substance: MOMETASONE FUROATE
     Route: 065
  426. NASONEX [Concomitant]
     Active Substance: MOMETASONE FUROATE
     Dosage: 2 DOSAGE FORM 1 EVERY 1 DAYS
     Route: 065
  427. NASONEX [Concomitant]
     Active Substance: MOMETASONE FUROATE
     Route: 065
  428. MORPHINE SULFATE [Concomitant]
     Active Substance: MORPHINE SULFATE
     Indication: Product used for unknown indication
     Dosage: 1 DOSAGE FORM, 1 EVERY 1 DAYS
     Route: 065
  429. NAPROXEN [Concomitant]
     Active Substance: NAPROXEN
     Indication: Headache
     Route: 065
  430. NAPROXEN [Concomitant]
     Active Substance: NAPROXEN
     Indication: Product used for unknown indication
     Route: 065
  431. CODEINE [Concomitant]
     Active Substance: CODEINE
     Indication: Product used for unknown indication
     Route: 065
  432. FROVATRIPTAN [FROVATRIPTAN SUCCINATE MONOHYDRATE] [Concomitant]
     Indication: Product used for unknown indication
     Route: 065
  433. CLARITHROMYCIN [Concomitant]
     Active Substance: CLARITHROMYCIN
     Indication: Product used for unknown indication
     Route: 065
  434. OSELTAMIVIR PHOSPHATE [Concomitant]
     Active Substance: OSELTAMIVIR PHOSPHATE
     Indication: Product used for unknown indication
     Route: 065
  435. OSELTAMIVIR PHOSPHATE [Concomitant]
     Active Substance: OSELTAMIVIR PHOSPHATE
     Route: 065
  436. PANTOPRAZOLE SODIUM [Concomitant]
     Active Substance: PANTOPRAZOLE SODIUM
     Indication: Product used for unknown indication
     Route: 065
  437. PANTOPRAZOLE SODIUM [Concomitant]
     Active Substance: PANTOPRAZOLE SODIUM
     Route: 065
  438. PANTOPRAZOLE SODIUM [Concomitant]
     Active Substance: PANTOPRAZOLE SODIUM
     Dosage: 1 DOSAGE FORM, Q12H
     Route: 065
  439. PANTOPRAZOLE SODIUM [Concomitant]
     Active Substance: PANTOPRAZOLE SODIUM
     Indication: Product used for unknown indication
     Route: 065
  440. VENLAFAXINE HYDROCHLORIDE [Concomitant]
     Active Substance: VENLAFAXINE HYDROCHLORIDE
     Indication: Product used for unknown indication
     Route: 065
  441. SULFAMETHOXAZOLE\TRIMETHOPRIM [Concomitant]
     Active Substance: SULFAMETHOXAZOLE\TRIMETHOPRIM
     Indication: Product used for unknown indication
     Route: 065
  442. BOTULINUM TOXIN TYPE A [Suspect]
     Active Substance: BOTULINUM TOXIN TYPE A
     Indication: Product used for unknown indication
     Route: 065
  443. BOTULINUM TOXIN TYPE A [Suspect]
     Active Substance: BOTULINUM TOXIN TYPE A
     Route: 065
  444. BOTULINUM TOXIN TYPE A [Suspect]
     Active Substance: BOTULINUM TOXIN TYPE A
     Route: 065
  445. BOTULINUM TOXIN TYPE A [Suspect]
     Active Substance: BOTULINUM TOXIN TYPE A
     Route: 065
  446. BOTULINUM TOXIN TYPE A [Suspect]
     Active Substance: BOTULINUM TOXIN TYPE A
     Route: 065
  447. CIPROFLOXACIN LACTATE [Suspect]
     Active Substance: CIPROFLOXACIN LACTATE
     Indication: Migraine
     Route: 065
  448. CIPROFLOXACIN LACTATE [Suspect]
     Active Substance: CIPROFLOXACIN LACTATE
     Dosage: 1 DOSAGE FORM, QD (1 EVERY 1 DAYS)
     Route: 065
  449. CIPROFLOXACIN LACTATE [Suspect]
     Active Substance: CIPROFLOXACIN LACTATE
     Route: 065
  450. CLOTRIMAZOLE [Suspect]
     Active Substance: CLOTRIMAZOLE
     Indication: Product used for unknown indication
     Route: 065
  451. NEXIUM 24HR [Suspect]
     Active Substance: ESOMEPRAZOLE MAGNESIUM
     Indication: Product used for unknown indication
     Route: 065
  452. PREDNISOLONE [Suspect]
     Active Substance: PREDNISOLONE
     Indication: Product used for unknown indication
     Route: 065
  453. ZESTRIL [Suspect]
     Active Substance: LISINOPRIL
     Indication: Product used for unknown indication
     Dosage: 1 DOSAGE FORM, QD
     Route: 048
  454. ZESTRIL [Suspect]
     Active Substance: LISINOPRIL
     Route: 065
  455. ZESTRIL [Suspect]
     Active Substance: LISINOPRIL
     Dosage: 1 DOSAGE FORM, QD
     Route: 048
  456. ZOPICLONE [Suspect]
     Active Substance: ZOPICLONE
     Indication: Migraine
     Dosage: 1 DOSAGE FORM, QD (1 EVERY 1 DAYS)
     Route: 065
  457. ZOPICLONE [Suspect]
     Active Substance: ZOPICLONE
     Dosage: 1 DOSAGE FORM, QD (1 EVERY 1 DAYS)
     Route: 065
  458. ZOPICLONE [Suspect]
     Active Substance: ZOPICLONE
     Dosage: 1 DOSAGE FORM, QD (1 EVERY 1 DAYS)
     Route: 065
  459. ZOPICLONE [Suspect]
     Active Substance: ZOPICLONE
     Dosage: 1 DOSAGE FORM, QD (1 EVERY 1 DAYS)
     Route: 065
  460. ZOPICLONE [Suspect]
     Active Substance: ZOPICLONE
     Dosage: 1 DOSAGE FORM, QD (1 EVERY 1 DAYS)
     Route: 065
  461. ZOPICLONE [Suspect]
     Active Substance: ZOPICLONE
     Dosage: 1 DOSAGE FORM, QD (1 EVERY 1 DAYS)
     Route: 065
  462. ZOPICLONE [Suspect]
     Active Substance: ZOPICLONE
     Dosage: 1 DOSAGE FORM, QD (1 EVERY 1 DAYS)
     Route: 065
  463. ZOPICLONE [Suspect]
     Active Substance: ZOPICLONE
     Dosage: 1 DOSAGE FORM, QD (1 EVERY 1 DAYS)
     Route: 065
  464. ZOPICLONE [Suspect]
     Active Substance: ZOPICLONE
     Dosage: 1 DOSAGE FORM, QD (1 EVERY 1 DAYS)
     Route: 065
  465. ZOPICLONE [Suspect]
     Active Substance: ZOPICLONE
     Dosage: 1 DOSAGE FORM, QD (1 EVERY 1 DAYS)
     Route: 065
  466. ZOPICLONE [Suspect]
     Active Substance: ZOPICLONE
     Dosage: 1 DOSAGE FORM, QD (1 EVERY 1 DAYS)
     Route: 065
  467. ZOPICLONE [Suspect]
     Active Substance: ZOPICLONE
     Dosage: 1 DOSAGE FORM, QD (1 EVERY 1 DAYS)
     Route: 065
  468. ZOPICLONE [Suspect]
     Active Substance: ZOPICLONE
     Dosage: 1 DOSAGE FORM, QD (1 EVERY 1 DAYS)
     Route: 065
  469. ZOPICLONE [Suspect]
     Active Substance: ZOPICLONE
     Dosage: 1 DOSAGE FORM, QD (1 EVERY 1 DAYS)
     Route: 065
  470. ZOPICLONE [Suspect]
     Active Substance: ZOPICLONE
     Dosage: 1 DOSAGE FORM, QD (1 EVERY 1 DAYS)
     Route: 065
  471. ZOPICLONE [Suspect]
     Active Substance: ZOPICLONE
     Dosage: 1 DOSAGE FORM, QD (1 EVERY 1 DAYS)
     Route: 065
  472. FROVATRIPTAN SUCCINATE [Suspect]
     Active Substance: FROVATRIPTAN SUCCINATE
     Route: 065

REACTIONS (11)
  - Angioedema [Unknown]
  - Drug intolerance [Unknown]
  - Dysphonia [Unknown]
  - Headache [Unknown]
  - Hypersensitivity [Unknown]
  - Swelling face [Unknown]
  - Swollen tongue [Unknown]
  - Drug ineffective [Unknown]
  - Off label use [Unknown]
  - Product use in unapproved indication [Unknown]
  - Drug ineffective for unapproved indication [Unknown]
